FAERS Safety Report 6142238-1 (Version None)
Quarter: 2009Q2

REPORT INFORMATION
  Report Type: 
  Country: None (occurrence: None)
  Receive Date: 20090403
  Receipt Date: 20071012
  Transmission Date: 20091009
  Serious: Yes (Other)
  Sender: FDA-Public Use
  Company Number: US-ASTRAZENECA-2006UW22184

PATIENT
  Age: 21839 Day
  Sex: Female
  Weight: 72.6 kg

DRUGS (42)
  1. SEROQUEL [Suspect]
     Indication: BIPOLAR DISORDER
     Route: 048
     Dates: start: 20020601, end: 20051101
  2. SEROQUEL [Suspect]
     Indication: DEPRESSION
     Route: 048
     Dates: start: 20020601, end: 20051101
  3. SEROQUEL [Suspect]
     Indication: SLEEP DISORDER
     Route: 048
     Dates: start: 20020601, end: 20051101
  4. SEROQUEL [Suspect]
     Dosage: 25-200 MG
     Route: 048
     Dates: start: 20020610, end: 20050101
  5. SEROQUEL [Suspect]
     Dosage: 25-200 MG
     Route: 048
     Dates: start: 20020610, end: 20050101
  6. SEROQUEL [Suspect]
     Dosage: 25-200 MG
     Route: 048
     Dates: start: 20020610, end: 20050101
  7. ABILIFY [Concomitant]
     Dates: start: 20070301
  8. RISPERDAL [Concomitant]
  9. ZYPREXA [Concomitant]
  10. METHADONE [Concomitant]
     Dates: start: 19670101, end: 19910101
  11. DESIPRAMINE HCL [Concomitant]
  12. PREVACID [Concomitant]
  13. FERROUS SULFATE TAB [Concomitant]
  14. ALTACE [Concomitant]
  15. CLONIDINE [Concomitant]
  16. ZOCOR [Concomitant]
  17. ATENOLOL [Concomitant]
  18. ASPIRIN [Concomitant]
  19. SONATA [Concomitant]
  20. LIORESAL [Concomitant]
  21. VICODIN [Concomitant]
  22. PREMARIN [Concomitant]
  23. CODEINE SUL TAB [Concomitant]
  24. LORATADINE [Concomitant]
  25. CLONAZEPAM [Concomitant]
  26. LORAZEPAM [Concomitant]
  27. NITROGLYCERIN [Concomitant]
  28. AMBIEN [Concomitant]
  29. AVINZA [Concomitant]
  30. MOBIC [Concomitant]
  31. DITROPAN XL [Concomitant]
  32. HYZAAR [Concomitant]
  33. CELEXA [Concomitant]
  34. DEPAKOTE [Concomitant]
  35. COMBIVENT [Concomitant]
  36. BUSPAR [Concomitant]
  37. ULTRAM [Concomitant]
  38. KLOR-CON [Concomitant]
  39. IMITREX [Concomitant]
  40. NAPROXEN [Concomitant]
  41. VERAPAMIL [Concomitant]
  42. EFFEXOR [Concomitant]

REACTIONS (22)
  - ANAEMIA [None]
  - ANHEDONIA [None]
  - BLOOD CHOLESTEROL INCREASED [None]
  - CHEST PAIN [None]
  - DIABETES MELLITUS [None]
  - DISTURBANCE IN ATTENTION [None]
  - DIZZINESS [None]
  - EMOTIONAL DISORDER [None]
  - FATIGUE [None]
  - HYPERTENSION [None]
  - INSOMNIA [None]
  - MOOD SWINGS [None]
  - MUSCULOSKELETAL PAIN [None]
  - OROPHARYNGEAL PAIN [None]
  - PANCREATITIS [None]
  - PANIC ATTACK [None]
  - POLYP [None]
  - RADICULITIS CERVICAL [None]
  - RADICULITIS LUMBOSACRAL [None]
  - SINUSITIS [None]
  - SUICIDAL IDEATION [None]
  - TEARFULNESS [None]
